FAERS Safety Report 25401269 (Version 1)
Quarter: 2025Q2

REPORT INFORMATION
  Report Type: Spontaneous
  Country: CN (occurrence: CN)
  Receive Date: 20250605
  Receipt Date: 20250605
  Transmission Date: 20250717
  Serious: Yes (Hospitalization, Other)
  Sender: PFIZER
  Company Number: CN-PFIZER INC-PV202500065614

PATIENT
  Age: 72 Year
  Sex: Male
  Weight: 50 kg

DRUGS (2)
  1. TYGACIL [Suspect]
     Active Substance: TIGECYCLINE
     Indication: Inguinal hernia
     Dosage: 100 MG, 2X/DAY
     Route: 041
     Dates: start: 20250514, end: 20250519
  2. TYGACIL [Suspect]
     Active Substance: TIGECYCLINE
     Indication: Peritonitis

REACTIONS (2)
  - Pancreatic enzymes increased [Recovering/Resolving]
  - Off label use [Unknown]

NARRATIVE: CASE EVENT DATE: 20250514
